FAERS Safety Report 8499955-8 (Version None)
Quarter: 2012Q3

REPORT INFORMATION
  Report Type: 
  Country: None (occurrence: None)
  Receive Date: 20120710
  Receipt Date: 20120705
  Transmission Date: 20120928
  Serious: Yes (Hospitalization, Other)
  Sender: FDA-Public Use
  Company Number: US-BAYER-2012-025723

PATIENT
  Age: 35 Year
  Sex: Female
  Weight: 152.83 kg

DRUGS (9)
  1. WELLBUTRIN XL [Concomitant]
     Dosage: 150 MG, QD
     Route: 048
  2. SYNTHROID [Concomitant]
  3. YAZ [Suspect]
     Dosage: UNK
     Dates: start: 20050101, end: 20090301
  4. VITAMIN D [Concomitant]
     Dosage: 50000 IU, OW
     Route: 048
  5. VITAMIN B COMPLEX CAP [Concomitant]
  6. YASMIN [Suspect]
     Dosage: UNK
     Dates: start: 20050101, end: 20090301
  7. PHENTERMINE [Concomitant]
     Dosage: 37.5 MG, QD
  8. TOPIRAMATE [Concomitant]
     Dosage: 50 MG, BID
     Route: 048
  9. DROSPIRENONE AND ETHINYL ESTRADIOL [Suspect]
     Dosage: UNK
     Dates: start: 20050101, end: 20090301

REACTIONS (8)
  - INJURY [None]
  - PAIN [None]
  - ARTERIAL THROMBOSIS LIMB [None]
  - ANXIETY [None]
  - DEEP VEIN THROMBOSIS [None]
  - SUBCLAVIAN ARTERY THROMBOSIS [None]
  - EMOTIONAL DISTRESS [None]
  - GENERAL PHYSICAL HEALTH DETERIORATION [None]
